FAERS Safety Report 19944029 (Version 1)
Quarter: 2021Q4

REPORT INFORMATION
  Report Type: Spontaneous
  Country: CN (occurrence: CN)
  Receive Date: 20211011
  Receipt Date: 20211011
  Transmission Date: 20220303
  Serious: Yes (Other)
  Sender: FDA-Public Use
  Company Number: CN-BAYER-2021A227141

PATIENT
  Age: 37 Year
  Sex: Female
  Weight: 48 kg

DRUGS (1)
  1. AVELOX [Suspect]
     Active Substance: MOXIFLOXACIN HYDROCHLORIDE
     Indication: Upper respiratory tract infection
     Dosage: 0.4 G, QD
     Route: 048
     Dates: start: 20210826, end: 20210826

REACTIONS (3)
  - Electrocardiogram ST-T change [Recovered/Resolved]
  - Palpitations [Recovering/Resolving]
  - Chest discomfort [Recovering/Resolving]

NARRATIVE: CASE EVENT DATE: 20210826
